FAERS Safety Report 6549034-1 (Version None)
Quarter: 2010Q1

REPORT INFORMATION
  Report Type: 
  Country: None (occurrence: None)
  Receive Date: 20100125
  Receipt Date: 20100120
  Transmission Date: 20100710
  Serious: Yes (Life-Threatening, Hospitalization)
  Sender: FDA-Public Use
  Company Number: GB-JNJFOC-20050203133

PATIENT
  Age: 10 Year
  Sex: Female
  Weight: 34.9 kg

DRUGS (11)
  1. SPORANOX [Suspect]
     Indication: BRONCHOPULMONARY ASPERGILLOSIS ALLERGIC
     Route: 048
     Dates: start: 20040714, end: 20050120
  2. SERETIDE [Interacting]
     Indication: CYSTIC FIBROSIS
     Route: 055
     Dates: start: 20041208, end: 20050112
  3. FLUTICASONE [Interacting]
     Indication: DRUG USE FOR UNKNOWN INDICATION
     Dosage: 125 - 250 MCG BID.
     Route: 055
  4. FLUTICASONE [Interacting]
     Route: 055
  5. TOCOPHEROL CONCENTRATE CAP [Concomitant]
     Indication: CYSTIC FIBROSIS
     Route: 048
  6. URSODEOXYCHOLIC ACID [Concomitant]
     Indication: CYSTIC FIBROSIS
     Route: 048
  7. CEFACLOR [Concomitant]
     Indication: CYSTIC FIBROSIS
     Route: 048
  8. ABDEC [Concomitant]
     Indication: CYSTIC FIBROSIS
     Route: 048
  9. TOBRAMYCIN [Concomitant]
     Indication: CYSTIC FIBROSIS
  10. PREDNISOLONE [Concomitant]
     Indication: CYSTIC FIBROSIS
     Dosage: SHORT COURSES SINCE 03
  11. PANCREATIN [Concomitant]
     Indication: CYSTIC FIBROSIS
     Dosage: '10,000' -30/DAY
     Route: 048

REACTIONS (4)
  - BLOOD CORTISOL DECREASED [None]
  - DRUG INTERACTION [None]
  - GROWTH RETARDATION [None]
  - PITUITARY-DEPENDENT CUSHING'S SYNDROME [None]
